FAERS Safety Report 4418020-X (Version None)
Quarter: 2004Q3

REPORT INFORMATION
  Report Type: 
  Country: None (occurrence: None)
  Receive Date: 20040804
  Receipt Date: 20040720
  Transmission Date: 20050211
  Serious: Yes (Death)
  Sender: FDA-Public Use
  Company Number: 199603

PATIENT
  Age: 49 Year
  Sex: Male

DRUGS (5)
  1. AVONEX [Suspect]
     Indication: MULTIPLE SCLEROSIS
     Dosage: 30 MCG QW IM
     Route: 030
     Dates: start: 20000310
  2. BACLOFEN [Concomitant]
  3. DITROPAN [Concomitant]
  4. PROVIGIL [Concomitant]
  5. AVONEX [Suspect]
     Indication: MULTIPLE SCLEROSIS
     Dosage: 30 MCG QW IM
     Route: 030
     Dates: end: 20040529

REACTIONS (4)
  - CARDIAC ARREST [None]
  - POSTURE ABNORMAL [None]
  - PULMONARY EMBOLISM [None]
  - SKIN DISCOLOURATION [None]
